FAERS Safety Report 21122579 (Version 1)
Quarter: 2022Q3

REPORT INFORMATION
  Report Type: Spontaneous
  Country: IL (occurrence: None)
  Receive Date: 20220723
  Receipt Date: 20220723
  Transmission Date: 20221026
  Serious: Yes (Other)
  Sender: FDA-Public Use
  Company Number: IL-ROCHE-3141452

PATIENT
  Age: 74 Year
  Sex: Female

DRUGS (2)
  1. XELODA [Suspect]
     Active Substance: CAPECITABINE
     Indication: Colon cancer
     Route: 065
  2. AVASTIN [Suspect]
     Active Substance: BEVACIZUMAB
     Indication: Colon cancer
     Route: 065

REACTIONS (5)
  - Rectal tenesmus [Unknown]
  - Metastases to liver [Unknown]
  - Neuropathy peripheral [Unknown]
  - Asthenia [Unknown]
  - Disease progression [Unknown]

NARRATIVE: CASE EVENT DATE: 20190101
